FAERS Safety Report 7757534-1 (Version None)
Quarter: 2011Q3

REPORT INFORMATION
  Report Type: 
  Country: None (occurrence: None)
  Receive Date: 20110916
  Receipt Date: 20110908
  Transmission Date: 20111222
  Serious: Yes (Other)
  Sender: FDA-Public Use
  Company Number: FR-BAYER-2011-084451

PATIENT
  Age: 66 Year
  Sex: Male

DRUGS (2)
  1. CIPROFLOXACIN [Suspect]
     Indication: NEPHRECTOMY
  2. CIPROFLOXACIN [Suspect]
     Indication: RENAL ABSCESS
     Dosage: UNK
     Dates: start: 20110812

REACTIONS (2)
  - PAIN IN EXTREMITY [None]
  - MUSCLE INJURY [None]
